FAERS Safety Report 4779729-1 (Version None)
Quarter: 2005Q3

REPORT INFORMATION
  Report Type: 
  Country: None (occurrence: None)
  Receive Date: 20050914
  Receipt Date: 20041014
  Transmission Date: 20060218
  Serious: Yes (Life-Threatening, Hospitalization)
  Sender: FDA-Public Use
  Company Number: 163-20785-04100369

PATIENT
  Age: 73 Year
  Sex: Female
  Weight: 74 kg

DRUGS (6)
  1. THALOMID [Suspect]
     Indication: MULTIPLE MYELOMA
     Dosage: 200MG, DAILY, ORAL
     Route: 048
     Dates: start: 20030326, end: 20030612
  2. DEXAMETHASONE [Suspect]
     Indication: MULTIPLE MYELOMA
     Dosage: 40 MG, DAYS 1-4, 9-12, 17-20 EVERY 29 DAYS, ORAL
     Route: 048
     Dates: start: 20030326, end: 20030609
  3. ZOMETA [Suspect]
     Indication: MULTIPLE MYELOMA
     Dosage: 4 MG, DAY 1 AND WEEK 4, WEEK 8, INTRAVENOUS
     Dates: start: 20030326, end: 20030519
  4. CELEBREX [Concomitant]
  5. LASIX (FUROSMIDE) [Concomitant]
  6. ZESTRIL [Concomitant]

REACTIONS (7)
  - CARDIAC ARREST [None]
  - CEREBRAL INFARCTION [None]
  - DEPRESSED LEVEL OF CONSCIOUSNESS [None]
  - HEMIPARESIS [None]
  - HYPOCALCAEMIA [None]
  - RENAL FAILURE [None]
  - RESPIRATORY FAILURE [None]
